FAERS Safety Report 12676160 (Version 1)
Quarter: 2016Q3

REPORT INFORMATION
  Report Type: Other
  Country: CA (occurrence: US)
  Receive Date: 20160823
  Receipt Date: 20160823
  Transmission Date: 20161109
  Serious: Yes (Death)
  Sender: FDA-Public Use
  Company Number: US-LUPIN PHARMACEUTICALS INC.-2016-03706

PATIENT
  Age: 13 Year
  Sex: Male

DRUGS (2)
  1. CEFTRIAXONE. [Suspect]
     Active Substance: CEFTRIAXONE
     Indication: MENINGITIS BACTERIAL
     Route: 042
  2. METRONIDAZOLE. [Concomitant]
     Active Substance: METRONIDAZOLE
     Indication: MENINGITIS BACTERIAL
     Route: 042

REACTIONS (3)
  - Meningitis bacterial [Fatal]
  - Treatment failure [Unknown]
  - Product measured potency issue [Unknown]
